FAERS Safety Report 8220357 (Version 2)
Quarter: 2014Q4

REPORT INFORMATION
  Report Type: Report from Study
  Country: US (occurrence: US)
  Receive Date: 20111101
  Receipt Date: 20141010
  Transmission Date: 20150529
  Serious: Yes (Hospitalization, Other)
  Sender: FDA-Public Use
  Company Number: US-AMGEN-USASP2011031159

PATIENT
  Age: 66 Year
  Sex: Female

DRUGS (3)
  1. ENBREL [Suspect]
     Active Substance: ETANERCEPT
     Indication: PSORIATIC ARTHROPATHY
     Dosage: 25 MG, 2 TIMES/WK
     Route: 065
     Dates: start: 19990801, end: 201208
  2. SULFASALAZINE. [Concomitant]
     Active Substance: SULFASALAZINE
     Dosage: UNK MG, UNK
  3. LEFLUNOMIDE. [Suspect]
     Active Substance: LEFLUNOMIDE
     Indication: PRODUCT USED FOR UNKNOWN INDICATION
     Dosage: UNK MG, UNK
     Route: 065

REACTIONS (19)
  - Arthralgia [Not Recovered/Not Resolved]
  - Oral herpes [Not Recovered/Not Resolved]
  - Escherichia sepsis [Recovered/Resolved]
  - Staphylococcal infection [Recovered/Resolved]
  - Sciatica [Not Recovered/Not Resolved]
  - Injection site pain [Unknown]
  - Psoriatic arthropathy [Unknown]
  - Urosepsis [Recovered/Resolved]
  - Pain in extremity [Unknown]
  - Arthritis [Unknown]
  - General symptom [Not Recovered/Not Resolved]
  - Osteoporosis [Not Recovered/Not Resolved]
  - Muscular weakness [Unknown]
  - Bone pain [Not Recovered/Not Resolved]
  - Arthropathy [Recovered/Resolved]
  - Escherichia infection [Recovered/Resolved]
  - Staphylococcal sepsis [Recovered/Resolved]
  - Inflammation [Unknown]
  - Bone disorder [Recovered/Resolved]

NARRATIVE: CASE EVENT DATE: 201006
